FAERS Safety Report 12760757 (Version 1)
Quarter: 2016Q3

REPORT INFORMATION
  Report Type: Spontaneous
  Country: MX (occurrence: MX)
  Receive Date: 20160919
  Receipt Date: 20160919
  Transmission Date: 20161109
  Serious: Yes (Other)
  Sender: FDA-Public Use
  Company Number: MX-009507513-1609MEX009046

PATIENT
  Age: 31 Year
  Sex: Female
  Weight: 53 kg

DRUGS (5)
  1. KETOROLAC TROMETHAMINE. [Concomitant]
     Active Substance: KETOROLAC TROMETHAMINE
     Indication: ABDOMINAL PAIN
     Dosage: UNK
     Route: 042
     Dates: start: 20160913, end: 20160913
  2. CIPROFLOXACIN. [Concomitant]
     Active Substance: CIPROFLOXACIN
     Indication: ANTIBIOTIC THERAPY
     Route: 042
  3. BRIDION [Suspect]
     Active Substance: SUGAMMADEX
     Indication: NEUROMUSCULAR BLOCKADE REVERSAL
     Dosage: FREQUENCY: 4ML, STRENGTH 100MG/ML
     Route: 042
     Dates: start: 20160913, end: 20160913
  4. RANITIDINE. [Concomitant]
     Active Substance: RANITIDINE
     Indication: ABDOMINAL PAIN
     Dosage: ROUTE OF ADMINISTRATION : GASTROENTERIC
     Dates: start: 20160913, end: 20160913
  5. METOCLOPRAMIDE. [Concomitant]
     Active Substance: METOCLOPRAMIDE
     Indication: NAUSEA
     Route: 042

REACTIONS (2)
  - Angioedema [Recovered/Resolved]
  - Cyanosis [Recovered/Resolved]

NARRATIVE: CASE EVENT DATE: 20160913
